FAERS Safety Report 7313756 (Version 6)
Quarter: 2013Q1

REPORT INFORMATION
  Report Type: Spontaneous
  Country: FR (occurrence: FR)
  Receive Date: 20100310
  Receipt Date: 20130318
  Transmission Date: 20140127
  Serious: Yes (Hospitalization)
  Sender: FDA-Public Use
  Company Number: FR-PFIZER INC-FR-WYE-G05702910

PATIENT
  Age: 17 Year
  Sex: Male

DRUGS (5)
  1. ADVIL [Suspect]
     Indication: INFLUENZA
     Dosage: UNK
     Route: 048
     Dates: start: 20100114, end: 201001
  2. TAMIFLU [Suspect]
     Indication: INFLUENZA
     Dosage: 75 MG, 1X/DAY
     Route: 048
     Dates: start: 20100114, end: 20100116
  3. MINOCYCLINE [Suspect]
     Indication: URETHRITIS
     Dosage: UNK
     Route: 048
     Dates: start: 20091230, end: 20100114
  4. DOLIPRANE [Suspect]
     Indication: INFLUENZA
     Dosage: UNK
     Route: 048
     Dates: start: 20100114, end: 201001
  5. HOMEOPATIC PREPARATION [Suspect]
     Indication: URETHRITIS
     Dosage: UNK
     Route: 048
     Dates: start: 20091230, end: 20100114

REACTIONS (1)
  - Drug reaction with eosinophilia and systemic symptoms [Recovered/Resolved]
